FAERS Safety Report 19452027 (Version 1)
Quarter: 2021Q2

REPORT INFORMATION
  Report Type: Spontaneous
  Country: US (occurrence: US)
  Receive Date: 20210623
  Receipt Date: 20210623
  Transmission Date: 20210717
  Serious: Yes (Hospitalization)
  Sender: FDA-Public Use
  Company Number: None

PATIENT
  Age: 32 Year
  Sex: Male
  Weight: 133.6 kg

DRUGS (9)
  1. DAUNORUBICIN?134 MG [Suspect]
     Active Substance: DAUNORUBICIN
     Dates: end: 20180103
  2. CYCLOPHOSPHAMIDE 5240 MG [Suspect]
     Active Substance: CYCLOPHOSPHAMIDE
     Dates: end: 20180207
  3. DEXAMETHASONE 280 MG [Suspect]
     Active Substance: DEXAMETHASONE
     Dates: end: 20180302
  4. RITUXIMAB (MOAB C2B8 ANTI CD20, CHIMERIC) 2000 MG [Suspect]
     Active Substance: RITUXIMAB
     Dates: end: 20180125
  5. MERCAPTOPURINE 2400 MG [Suspect]
     Active Substance: MERCAPTOPURINE
     Dates: end: 20180208
  6. METHOTREXATE?50 MG [Suspect]
     Active Substance: METHOTREXATE
     Dates: end: 20180131
  7. CYTARABINE 2000 MG [Suspect]
     Active Substance: CYTARABINE
     Indication: THERAPY INTERRUPTED
     Dates: end: 20180208
  8. ONCASPAR [Suspect]
     Active Substance: PEGASPARGASE
     Dates: end: 20180124
  9. VINCRISTINE SULFATE 8 MG [Suspect]
     Active Substance: VINCRISTINE SULFATE
     Dates: end: 20180103

REACTIONS (19)
  - Vomiting [None]
  - Transfusion [None]
  - Tachycardia [None]
  - Hyperglycaemia [None]
  - Thrombocytopenia [None]
  - Cough [None]
  - Blood pressure systolic decreased [None]
  - Anaemia [None]
  - Shock [None]
  - Sepsis [None]
  - Blood lactic acid increased [None]
  - Nausea [None]
  - Myalgia [None]
  - Hyperhidrosis [None]
  - Pyrexia [None]
  - Shift to the left [None]
  - Disturbance in attention [None]
  - Viral infection [None]
  - Confusional state [None]

NARRATIVE: CASE EVENT DATE: 20180208
